FAERS Safety Report 11452169 (Version 1)
Quarter: 2015Q3

REPORT INFORMATION
  Report Type: Spontaneous
  Country: US (occurrence: US)
  Receive Date: 20150831
  Receipt Date: 20150831
  Transmission Date: 20151125
  Serious: Yes (Hospitalization, Other)
  Sender: FDA-Public Use
  Company Number: US-ELI_LILLY_AND_COMPANY-US200907003822

PATIENT
  Age: 50 Year
  Sex: Female

DRUGS (2)
  1. CYMBALTA [Suspect]
     Active Substance: DULOXETINE HYDROCHLORIDE
     Indication: FIBROMYALGIA
     Dosage: 60 MG, DAILY (1/D)
     Dates: start: 20090612, end: 20090710
  2. ASA [Concomitant]
     Active Substance: ASPIRIN
     Indication: FIBROMYALGIA
     Dosage: 325 MG, 4/D
     Dates: end: 20090619

REACTIONS (2)
  - Vaginal haemorrhage [Unknown]
  - Varicose vein [Unknown]

NARRATIVE: CASE EVENT DATE: 20090709
